FAERS Safety Report 10213640 (Version 1)
Quarter: 2014Q2

REPORT INFORMATION
  Report Type: Spontaneous
  Country: US (occurrence: None)
  Receive Date: 20140602
  Receipt Date: 20140602
  Transmission Date: 20141212
  Serious: Yes (Hospitalization, Disabling)
  Sender: FDA-Public Use
  Company Number: None

PATIENT
  Age: 35 Year
  Sex: Female
  Weight: 48.08 kg

DRUGS (1)
  1. CYMBALTA [Suspect]
     Indication: FIBROMYALGIA
     Route: 048

REACTIONS (34)
  - Drug dose omission [None]
  - Dizziness [None]
  - Asthenia [None]
  - Nausea [None]
  - Vomiting [None]
  - Abdominal pain [None]
  - Myalgia [None]
  - Pregnancy [None]
  - Maternal exposure during pregnancy [None]
  - Therapy cessation [None]
  - Drug withdrawal syndrome [None]
  - Feeling abnormal [None]
  - Mental impairment [None]
  - Dysstasia [None]
  - Cold sweat [None]
  - Dizziness [None]
  - Impaired work ability [None]
  - Paraesthesia [None]
  - Insomnia [None]
  - Anxiety [None]
  - Restlessness [None]
  - Fatigue [None]
  - Fatigue [None]
  - Tremor [None]
  - Asthenia [None]
  - Cognitive disorder [None]
  - Confusional state [None]
  - Visual impairment [None]
  - Tremor [None]
  - Muscle spasms [None]
  - Abdominal discomfort [None]
  - Gastrointestinal pain [None]
  - Nightmare [None]
  - Night sweats [None]
